FAERS Safety Report 4325770-2 (Version None)
Quarter: 2004Q1

REPORT INFORMATION
  Report Type: 
  Country: None (occurrence: None)
  Receive Date: 20040324
  Receipt Date: 20040305
  Transmission Date: 20041129
  Serious: Yes (Hospitalization)
  Sender: FDA-Public Use
  Company Number: USA040260267

PATIENT
  Age: 63 Year
  Sex: Male

DRUGS (3)
  1. HUMALOG [Suspect]
     Indication: DIABETES MELLITUS
     Dosage: 40 U DAY
     Dates: start: 20020101
  2. LANTUS [Concomitant]
  3. METOPROLOL [Concomitant]

REACTIONS (3)
  - ARRHYTHMIA [None]
  - PNEUMONIA [None]
  - WEIGHT DECREASED [None]
